FAERS Safety Report 9691839 (Version 1)
Quarter: 2013Q4

REPORT INFORMATION
  Report Type: Spontaneous
  Country: US (occurrence: US)
  Receive Date: 20131116
  Receipt Date: 20131116
  Transmission Date: 20140711
  Serious: Yes (Other)
  Sender: FDA-Public Use
  Company Number: US-009507513-1311USA006089

PATIENT
  Age: 15 Year
  Sex: Female

DRUGS (1)
  1. MONTELUKAST SODIUM [Suspect]
     Dosage: UNK
     Route: 048

REACTIONS (1)
  - Suicide attempt [Unknown]
